FAERS Safety Report 19221112 (Version 2)
Quarter: 2021Q2

REPORT INFORMATION
  Report Type: Spontaneous
  Country: RU (occurrence: RU)
  Receive Date: 20210506
  Receipt Date: 20210618
  Transmission Date: 20210717
  Serious: Yes (Hospitalization, Other)
  Sender: FDA-Public Use
  Company Number: NVSC2021RU095257

PATIENT
  Sex: Male

DRUGS (1)
  1. SECUKINUMAB. [Suspect]
     Active Substance: SECUKINUMAB
     Indication: PRODUCT USED FOR UNKNOWN INDICATION
     Dosage: 300 MG, QW
     Route: 065

REACTIONS (9)
  - Proctitis [Unknown]
  - Abdominal pain [Unknown]
  - Terminal ileitis [Recovering/Resolving]
  - Red blood cell sedimentation rate increased [Unknown]
  - Catarrh [Unknown]
  - Chondropathy [Recovering/Resolving]
  - Off label use [Unknown]
  - Ileal ulcer [Unknown]
  - Skin disorder [Recovering/Resolving]

NARRATIVE: CASE EVENT DATE: 202010
